FAERS Safety Report 7790994-9 (Version None)
Quarter: 2011Q4

REPORT INFORMATION
  Report Type: 
  Country: None (occurrence: None)
  Receive Date: 20111002
  Receipt Date: 20110927
  Transmission Date: 20120403
  Serious: Yes (Hospitalization)
  Sender: FDA-Public Use
  Company Number: US-BRISTOL-MYERS SQUIBB COMPANY-16040933

PATIENT
  Age: 50 Year
  Sex: Female
  Weight: 64 kg

DRUGS (2)
  1. IPILIMUMAB [Suspect]
     Indication: MALIGNANT MELANOMA
     Dosage: LAST DOSE:29AUG2011, TOTAL DOSE THIS COURSE 620 MG.
     Route: 042
     Dates: start: 20110718, end: 20110829
  2. LEUKINE [Suspect]
     Indication: MALIGNANT MELANOMA
     Dosage: LAST DOSE: 06SEP2011; TOTAL DOSE THIS COURSE 2250 MG, 250 MCG/DAY ON DAY 1-14
     Route: 058
     Dates: start: 20110718, end: 20110906

REACTIONS (5)
  - HYPOALBUMINAEMIA [None]
  - LARGE INTESTINE PERFORATION [None]
  - DIARRHOEA [None]
  - DEHYDRATION [None]
  - BACK PAIN [None]
